FAERS Safety Report 4591482-3 (Version None)
Quarter: 2005Q1

REPORT INFORMATION
  Report Type: 
  Country: None (occurrence: None)
  Receive Date: 20050225
  Receipt Date: 20041222
  Transmission Date: 20050727
  Serious: Yes (Other)
  Sender: FDA-Public Use
  Company Number: US-ABBOTT-04P-163-0284497-00

PATIENT
  Sex: Female
  Weight: 72.64 kg

DRUGS (5)
  1. DEPAKOTE [Suspect]
     Indication: BIPOLAR DISORDER
     Dates: end: 20041201
  2. DEPAKOTE [Suspect]
     Dates: start: 20041201
  3. CLOZAPINE [Suspect]
     Indication: BIPOLAR DISORDER
     Route: 048
     Dates: start: 20041101
  4. CLOZAPINE [Suspect]
     Route: 048
  5. CLONAZEPAM [Suspect]
     Indication: DRUG USE FOR UNKNOWN INDICATION
     Dates: end: 20041215

REACTIONS (17)
  - ANAEMIA MACROCYTIC [None]
  - DRUG LEVEL INCREASED [None]
  - EAR PAIN [None]
  - EOSINOPHIL COUNT INCREASED [None]
  - LYMPHOCYTE COUNT INCREASED [None]
  - MALAISE [None]
  - MEAN CELL VOLUME INCREASED [None]
  - MONOCYTE COUNT INCREASED [None]
  - NASAL CONGESTION [None]
  - NEUTROPHIL COUNT INCREASED [None]
  - PAIN [None]
  - PHARYNGITIS [None]
  - PRODUCTIVE COUGH [None]
  - PYREXIA [None]
  - SEDATION [None]
  - TACHYCARDIA [None]
  - WHITE BLOOD CELL COUNT INCREASED [None]
